FAERS Safety Report 21915866 (Version 1)
Quarter: 2023Q1

REPORT INFORMATION
  Report Type: Spontaneous
  Country: US (occurrence: None)
  Receive Date: 20230125
  Receipt Date: 20230125
  Transmission Date: 20230417
  Serious: No
  Sender: FDA-Public Use
  Company Number: None

PATIENT
  Age: 82 Year
  Sex: Female

DRUGS (1)
  1. DUPIXENT [Suspect]
     Active Substance: DUPILUMAB
     Indication: Asthma
     Dosage: OTHER FREQUENCY : EVERY 2 WKS;?
     Route: 058
     Dates: start: 20220909

REACTIONS (3)
  - Tremor [None]
  - Ocular hyperaemia [None]
  - Injection site rash [None]

NARRATIVE: CASE EVENT DATE: 20230125
